FAERS Safety Report 16007667 (Version 1)
Quarter: 2019Q1

REPORT INFORMATION
  Report Type: Spontaneous
  Country: US (occurrence: US)
  Receive Date: 20190226
  Receipt Date: 20190226
  Transmission Date: 20190418
  Serious: No
  Sender: FDA-Public Use
  Company Number: US-PERRIGO-18US003404

PATIENT
  Age: 81 Year
  Sex: Female
  Weight: 40.36 kg

DRUGS (1)
  1. NAPROXEN SODIUM. [Suspect]
     Active Substance: NAPROXEN SODIUM
     Indication: PAIN
     Dosage: 440 MG, QD PRN
     Route: 048
     Dates: end: 201803

REACTIONS (2)
  - Abdominal discomfort [Recovered/Resolved]
  - Expired product administered [Recovered/Resolved]
